FAERS Safety Report 12728884 (Version 1)
Quarter: 2016Q3

REPORT INFORMATION
  Report Type: Spontaneous
  Country: NL (occurrence: NL)
  Receive Date: 20160909
  Receipt Date: 20160909
  Transmission Date: 20161109
  Serious: Yes (Other)
  Sender: FDA-Public Use
  Company Number: NL-TEVA-690436ISR

PATIENT
  Age: 70 Year
  Sex: Male

DRUGS (2)
  1. OFLOXACIN. [Suspect]
     Active Substance: OFLOXACIN
     Route: 065
  2. ROSUVASTATIN. [Suspect]
     Active Substance: ROSUVASTATIN
     Dosage: 10 MG/DAY
     Route: 065

REACTIONS (1)
  - Muscle rupture [Unknown]
